FAERS Safety Report 7797583-0 (Version None)
Quarter: 2011Q4

REPORT INFORMATION
  Report Type: 
  Country: None (occurrence: None)
  Receive Date: 20111003
  Receipt Date: 20100801
  Transmission Date: 20120403
  Serious: No
  Sender: FDA-Public Use
  Company Number: AEUSA201000285

PATIENT
  Age: 34 Year
  Sex: Female

DRUGS (1)
  1. HYPERRHO [Suspect]
     Indication: PREGNANCY
     Dosage: 300 UG;X1; IM
     Route: 030
     Dates: start: 20100527, end: 20100527

REACTIONS (2)
  - LABORATORY TEST INTERFERENCE [None]
  - RHESUS ANTIBODIES POSITIVE [None]
